FAERS Safety Report 8508925-2 (Version None)
Quarter: 2012Q3

REPORT INFORMATION
  Report Type: 
  Country: None (occurrence: None)
  Receive Date: 20120703
  Receipt Date: 20120615
  Transmission Date: 20120928
  Serious: Yes (Hospitalization, Disabling, Other)
  Sender: FDA-Public Use
  Company Number: 2011MA004172

PATIENT
  Sex: Female
  Weight: 100.0181 kg

DRUGS (68)
  1. AZAMACORT [Concomitant]
  2. BONIVA [Concomitant]
  3. LIDOCAINE [Concomitant]
  4. COZAAR [Concomitant]
  5. METFORMIN HYDROCHLORIDE [Concomitant]
  6. PREDNISONE [Concomitant]
  7. ROCEPHIN [Concomitant]
  8. SOLU-MEDROL [Concomitant]
  9. ZOFRAN [Concomitant]
  10. CLOTRIMAZOLE [Concomitant]
  11. FLONASE [Concomitant]
  12. NEURONTIN [Concomitant]
  13. HEB MIGRAINE [Concomitant]
  14. HYDRODIURIL [Concomitant]
  15. KEFLEX [Concomitant]
  16. LISINOPRIL [Concomitant]
  17. MIRAPEX [Concomitant]
  18. MORPHINE [Concomitant]
  19. NEXIUM [Concomitant]
  20. PAXIL [Concomitant]
  21. SALSALATE [Concomitant]
  22. AMOXICILLIN [Concomitant]
  23. TYLENOL W/ CODEINE NO. 3 [Concomitant]
  24. BEN-GAY [Concomitant]
  25. IBUPROFEN [Concomitant]
  26. LEVSIN [Concomitant]
  27. NEUROLEPTIC MEDICATIONS [Concomitant]
  28. NYGESIC [Concomitant]
  29. REQUIP [Concomitant]
  30. METOCLOPRAMIDE [Suspect]
     Indication: FLATULENCE
     Dosage: 10 MG;AC + HS
     Dates: start: 20020101, end: 20100706
  31. METOCLOPRAMIDE [Suspect]
     Indication: GASTRITIS
     Dosage: 10 MG;AC + HS
     Dates: start: 20020101, end: 20100706
  32. METOCLOPRAMIDE [Suspect]
     Indication: GASTROOESOPHAGEAL REFLUX DISEASE
     Dosage: 10 MG;AC + HS
     Dates: start: 20020101, end: 20100706
  33. PROVENTIL [Concomitant]
  34. DUONEB [Concomitant]
  35. ATIVAN [Concomitant]
  36. TYLENOL [Concomitant]
  37. ZYRTEC [Concomitant]
  38. AUGMENTIN '500' [Concomitant]
  39. DRISDOL [Concomitant]
  40. ATROVENT [Concomitant]
  41. TORADOL [Concomitant]
  42. LEXAPRO [Concomitant]
  43. ROBAXIN [Concomitant]
  44. PROTONIX [Concomitant]
  45. TYLENOL ARTHRITIS [Concomitant]
  46. WELLBUTRIN [Concomitant]
  47. INFLUENZA VACCINE [Concomitant]
  48. HUMULIN 70/30 [Concomitant]
  49. COMBIVENT [Concomitant]
  50. LEVAQUIN [Concomitant]
  51. QUININE SULFATE [Concomitant]
  52. ZOCOR [Concomitant]
  53. TRAZODONE HYDROCHLORIDE [Concomitant]
  54. GLYBURIDE [Concomitant]
  55. ACTONEL [Concomitant]
  56. CARMOL [Concomitant]
  57. CYCLOBENAZPRINE [Concomitant]
  58. GUIATUSS DM [Concomitant]
  59. INVEGA [Concomitant]
  60. PHENERGAN HCL [Concomitant]
  61. TESSALON [Concomitant]
  62. ZITHROMAX [Concomitant]
  63. DETROL LA [Concomitant]
  64. DICYCLOMINE [Concomitant]
  65. EVISTA [Concomitant]
  66. ADVAIR DISKUS 100/50 [Concomitant]
  67. PRILOSEC [Concomitant]
  68. ZOLOFT [Concomitant]

REACTIONS (99)
  - HYPERHIDROSIS [None]
  - COUGH [None]
  - TOOTHACHE [None]
  - STRESS [None]
  - ASTHMA [None]
  - NERVOUS SYSTEM DISORDER [None]
  - POLLAKIURIA [None]
  - PNEUMONIA [None]
  - TENOSYNOVITIS [None]
  - URINARY TRACT INFECTION [None]
  - GINGIVITIS [None]
  - ACUTE CORONARY SYNDROME [None]
  - LYMPHADENOPATHY [None]
  - DIARRHOEA [None]
  - OXYGEN SATURATION DECREASED [None]
  - MICTURITION URGENCY [None]
  - SOCIAL AVOIDANT BEHAVIOUR [None]
  - HALLUCINATIONS, MIXED [None]
  - MYALGIA [None]
  - BREAST CYST [None]
  - MOVEMENT DISORDER [None]
  - DIABETES MELLITUS INADEQUATE CONTROL [None]
  - MUSCLE SPASMS [None]
  - VIITH NERVE PARALYSIS [None]
  - LOCKED-IN SYNDROME [None]
  - PAIN [None]
  - ANXIETY [None]
  - MENTAL DISORDER [None]
  - VOMITING [None]
  - RHINITIS ALLERGIC [None]
  - LIVER DISORDER [None]
  - UPPER RESPIRATORY TRACT INFECTION [None]
  - DIVERTICULITIS [None]
  - VULVOVAGINAL PRURITUS [None]
  - FUNGAL INFECTION [None]
  - CHEST PAIN [None]
  - MIGRAINE [None]
  - ROAD TRAFFIC ACCIDENT [None]
  - SPINAL OSTEOARTHRITIS [None]
  - CONTUSION [None]
  - MUSCULOSKELETAL PAIN [None]
  - EMPHYSEMA [None]
  - ACTIVITIES OF DAILY LIVING IMPAIRED [None]
  - CONSTRICTED AFFECT [None]
  - CONDITION AGGRAVATED [None]
  - ANHEDONIA [None]
  - SCIATICA [None]
  - COSTOCHONDRITIS [None]
  - VITAMIN D DEFICIENCY [None]
  - HIATUS HERNIA [None]
  - ABDOMINAL PAIN [None]
  - TONGUE DISORDER [None]
  - CHEST DISCOMFORT [None]
  - MULTIPLE INJURIES [None]
  - TARDIVE DYSKINESIA [None]
  - DYSPNOEA [None]
  - NEURALGIA [None]
  - OSTEOPENIA [None]
  - FALL [None]
  - BRONCHITIS [None]
  - PARAESTHESIA [None]
  - DEFORMITY [None]
  - SLEEP APNOEA SYNDROME [None]
  - DEPRESSION [None]
  - ARTHRITIS [None]
  - BACK PAIN [None]
  - INCORRECT DRUG ADMINISTRATION DURATION [None]
  - NECK PAIN [None]
  - DENTAL CARIES [None]
  - BREAST MASS [None]
  - HYPOAESTHESIA [None]
  - MUSCLE TIGHTNESS [None]
  - CHRONIC OBSTRUCTIVE PULMONARY DISEASE [None]
  - SLEEP DISORDER [None]
  - BONE PAIN [None]
  - ARTHRALGIA [None]
  - WHITE BLOOD CELL COUNT INCREASED [None]
  - RESTLESS LEGS SYNDROME [None]
  - CYSTITIS [None]
  - TEMPOROMANDIBULAR JOINT SYNDROME [None]
  - ABDOMINAL PAIN UPPER [None]
  - EXTRAPYRAMIDAL DISORDER [None]
  - ECONOMIC PROBLEM [None]
  - NAUSEA [None]
  - DYSURIA [None]
  - MUSCULOSKELETAL CHEST PAIN [None]
  - RIB FRACTURE [None]
  - HYPERTENSION [None]
  - HYPERCHOLESTEROLAEMIA [None]
  - CARDIOVASCULAR DECONDITIONING [None]
  - GASTROOESOPHAGEAL REFLUX DISEASE [None]
  - INTERVERTEBRAL DISC PROTRUSION [None]
  - HEPATIC STEATOSIS [None]
  - PYREXIA [None]
  - SPEECH DISORDER [None]
  - DYSKINESIA [None]
  - UNEVALUABLE EVENT [None]
  - EYE PAIN [None]
  - SPUTUM DISCOLOURED [None]
